FAERS Safety Report 8650142 (Version 2)
Quarter: 2012Q4

REPORT INFORMATION
  Report Type: 
  Country: FR (occurrence: FR)
  Receive Date: 20120705
  Receipt Date: 20121023
  Transmission Date: 20130627
  Serious: Yes (Hospitalization, Disabling, Other)
  Sender: FDA-Public Use
  Company Number: FR-ROCHE-1083003

PATIENT
  Age: 60 Year
  Sex: Male

DRUGS (6)
  1. ZELBORAF [Suspect]
     Indication: METASTATIC MALIGNANT MELANOMA
     Route: 065
     Dates: start: 20120313
  2. ZELBORAF [Suspect]
     Dosage: 6 tablets
     Route: 065
     Dates: start: 201207
  3. ZELBORAF [Suspect]
     Dosage: 3 tablets
     Route: 065
  4. INSULIN [Concomitant]
     Indication: DIABETES MELLITUS
  5. PRAVASTATINE [Concomitant]
     Dosage: 1 DF
     Route: 065
  6. VASTEN [Concomitant]

REACTIONS (6)
  - Dysaesthesia [Recovering/Resolving]
  - Arthritis [Not Recovered/Not Resolved]
  - Sclerodactylia [Not Recovered/Not Resolved]
  - Photosensitivity reaction [Recovered/Resolved with Sequelae]
  - Skin papilloma [Recovered/Resolved]
  - Paraesthesia [Recovering/Resolving]
